FAERS Safety Report 10189436 (Version 1)
Quarter: 2014Q2

REPORT INFORMATION
  Report Type: Report from Study
  Country: NL (occurrence: NL)
  Receive Date: 20140522
  Receipt Date: 20140522
  Transmission Date: 20141212
  Serious: Yes (Disabling)
  Sender: FDA-Public Use
  Company Number: NL-ABBVIE-14P-114-1239908-00

PATIENT
  Age: 89 Year
  Sex: Male

DRUGS (2)
  1. LUCRIN DEPOT [Suspect]
     Indication: PROSTATE CANCER
     Route: 058
     Dates: start: 20131106, end: 20140514
  2. MIRCERA [Concomitant]
     Indication: RENAL FAILURE
     Dosage: 0.3ML WWSP
     Route: 058
     Dates: start: 20130909, end: 20140514

REACTIONS (1)
  - Terminal state [Not Recovered/Not Resolved]
